FAERS Safety Report 8398112 (Version 5)
Quarter: 2015Q4

REPORT INFORMATION
  Report Type: Report from Study
  Country: KR (occurrence: KR)
  Receive Date: 20120209
  Receipt Date: 20151118
  Transmission Date: 20160305
  Serious: Yes (Death)
  Sender: FDA-Public Use
  Company Number: KR-PFIZER INC-2012031249

PATIENT
  Age: 71 Year
  Sex: Male
  Weight: 55 kg

DRUGS (87)
  1. DISTILLED WATER [Concomitant]
     Dosage: 5%
     Route: 042
     Dates: start: 20120117, end: 20120118
  2. DISTILLED WATER [Concomitant]
     Dosage: 5% 500 ML, UNK
     Route: 042
     Dates: start: 20120126, end: 20120126
  3. DISTILLED WATER [Concomitant]
     Indication: ENEMA ADMINISTRATION
     Dosage: 10%
     Dates: start: 20120109, end: 20120109
  4. ALBUMIN HUMAN [Concomitant]
     Active Substance: ALBUMIN (HUMAN)
     Dosage: UNK ML, UNK
     Route: 042
     Dates: start: 20120112, end: 20120112
  5. FURIX [Concomitant]
     Active Substance: FUROSEMIDE
     Dosage: UNK
     Route: 048
     Dates: start: 20120109, end: 20120113
  6. SOLU-CORTEF [Concomitant]
     Active Substance: HYDROCORTISONE SODIUM SUCCINATE
     Indication: HORMONE THERAPY
     Dosage: UNK
     Route: 042
     Dates: start: 20120103, end: 20120107
  7. PLASMA, FRESH FROZEN [Concomitant]
     Active Substance: HUMAN PLASMA
     Dosage: UNK
     Dates: start: 20120103, end: 20120103
  8. DISTILLED WATER [Concomitant]
     Indication: ELECTROLYTE SUBSTITUTION THERAPY
     Dosage: 5%
     Route: 042
     Dates: start: 20120107, end: 20120107
  9. DISTILLED WATER [Concomitant]
     Dosage: 5%
     Route: 042
     Dates: start: 20120109, end: 20120109
  10. DISTILLED WATER [Concomitant]
     Dosage: 5% 500 ML, UNK
     Route: 042
     Dates: start: 20120122, end: 20120123
  11. DISTILLED WATER [Concomitant]
     Dosage: 10%
     Dates: start: 20120120, end: 20120120
  12. NORMAL SALINE [Concomitant]
     Active Substance: SODIUM CHLORIDE
     Dosage: 100 ML, UNK
     Route: 042
     Dates: start: 20120118, end: 20120118
  13. DUPHALAC [Concomitant]
     Active Substance: LACTULOSE
     Dosage: UNK
     Route: 048
     Dates: start: 20120115, end: 20120122
  14. ALMAGEL [Concomitant]
     Indication: ANTACID THERAPY
     Dosage: UNK
     Route: 048
     Dates: start: 20120112, end: 20120112
  15. VESICARE [Concomitant]
     Active Substance: SOLIFENACIN SUCCINATE
     Indication: POLLAKIURIA
     Dosage: UNK
     Route: 048
     Dates: start: 20120108, end: 20120108
  16. DISTILLED WATER [Concomitant]
     Dosage: 5% 500 ML, UNK
     Route: 042
     Dates: start: 20120117, end: 20120117
  17. DISTILLED WATER [Concomitant]
     Dosage: 10%
     Dates: start: 20120114, end: 20120114
  18. ALBUMIN HUMAN [Concomitant]
     Active Substance: ALBUMIN (HUMAN)
     Dosage: UNK ML, UNK
     Route: 042
     Dates: start: 20120116, end: 20120117
  19. DUPHALAC [Concomitant]
     Active Substance: LACTULOSE
     Dosage: UNK
     Dates: start: 20120114, end: 20120114
  20. DUPHALAC [Concomitant]
     Active Substance: LACTULOSE
     Dosage: UNK
     Dates: start: 20120120, end: 20120120
  21. DUROGESIC [Concomitant]
     Active Substance: FENTANYL
     Dosage: 25 UG, UNK
     Dates: start: 20120121, end: 20120121
  22. SACCHAROMYCES BOULARDII [Concomitant]
     Active Substance: SACCHAROMYCES CEREVISIAE
     Indication: PROPHYLAXIS
     Dosage: UNK
     Route: 048
     Dates: start: 20120101, end: 20120122
  23. ALDACTONE [Concomitant]
     Active Substance: SPIRONOLACTONE
     Indication: DIURETIC THERAPY
     Dosage: UNK
     Route: 048
     Dates: start: 20120107, end: 20120108
  24. FURIX [Concomitant]
     Active Substance: FUROSEMIDE
     Dosage: UNK
     Route: 048
     Dates: start: 20120115, end: 20120118
  25. VESICARE [Concomitant]
     Active Substance: SOLIFENACIN SUCCINATE
     Indication: URINARY INCONTINENCE
     Dosage: UNK
     Route: 048
     Dates: start: 20120118, end: 20120118
  26. TRIDOL [Concomitant]
     Dosage: UNK
     Route: 042
     Dates: start: 20120115, end: 20120115
  27. TRIDOL [Concomitant]
     Dosage: UNK
     Route: 042
     Dates: start: 20120119, end: 20120119
  28. SOLU-CORTEF [Concomitant]
     Active Substance: HYDROCORTISONE SODIUM SUCCINATE
     Dosage: UNK
     Route: 042
     Dates: start: 20120108, end: 20120109
  29. VITAMIN K1 [Concomitant]
     Active Substance: PHYTONADIONE
     Dosage: UNK
     Route: 042
     Dates: start: 20120117, end: 20120117
  30. TIGECYCLINE. [Suspect]
     Active Substance: TIGECYCLINE
     Indication: SOFT TISSUE INFECTION
     Dosage: 50 MG, 2X/DAY
     Route: 042
     Dates: start: 20120107, end: 20120118
  31. NORMAL SALINE [Concomitant]
     Active Substance: SODIUM CHLORIDE
     Indication: ELECTROLYTE SUBSTITUTION THERAPY
     Dosage: 100 ML, UNK
     Route: 042
     Dates: start: 20120107, end: 20120117
  32. TRAVAD PHOSPHATE ENEMA [Concomitant]
     Dosage: UNK
     Dates: start: 20120126, end: 20120126
  33. DUROGESIC [Concomitant]
     Active Substance: FENTANYL
     Dosage: 12 UG, UNK
     Dates: start: 20120118, end: 20120118
  34. ALDACTONE [Concomitant]
     Active Substance: SPIRONOLACTONE
     Dosage: UNK
     Route: 048
     Dates: start: 20120109, end: 20120118
  35. FURIX [Concomitant]
     Active Substance: FUROSEMIDE
     Indication: DIURETIC THERAPY
     Dosage: UNK
     Route: 048
     Dates: start: 20111231, end: 20120108
  36. TRIDOL [Concomitant]
     Indication: PAIN MANAGEMENT
     Dosage: UNK
     Route: 042
     Dates: start: 20120106, end: 20120107
  37. TRIDOL [Concomitant]
     Dosage: UNK
     Route: 042
     Dates: start: 20120120, end: 20120120
  38. TRIDOL [Concomitant]
     Dosage: UNK
     Route: 042
     Dates: start: 20120124, end: 20120125
  39. LASIX [Concomitant]
     Active Substance: FUROSEMIDE
     Dosage: UNK
     Route: 042
     Dates: start: 20120115, end: 20120116
  40. PLASMA, FRESH FROZEN [Concomitant]
     Active Substance: HUMAN PLASMA
     Dosage: UNK
     Dates: start: 20120104, end: 20120104
  41. DISTILLED WATER [Concomitant]
     Dosage: 5%
     Route: 042
     Dates: start: 20120111, end: 20120111
  42. ALBUMIN HUMAN [Concomitant]
     Active Substance: ALBUMIN (HUMAN)
     Dosage: UNK ML, UNK
     Route: 042
     Dates: start: 20120120, end: 20120120
  43. PAMIDRONATE DISODIUM. [Concomitant]
     Active Substance: PAMIDRONATE DISODIUM
     Indication: SUPPLEMENTATION THERAPY
     Dosage: UNK
     Route: 042
     Dates: start: 20120114, end: 20120115
  44. DUPHALAC [Concomitant]
     Active Substance: LACTULOSE
     Indication: ENEMA ADMINISTRATION
     Dosage: UNK
     Dates: start: 20120109, end: 20120109
  45. POTASSIUM CHLORIDE. [Concomitant]
     Active Substance: POTASSIUM CHLORIDE
     Dosage: 6 TABLETS
     Route: 048
     Dates: start: 20120112, end: 20120112
  46. METOCLOPRAMIDE. [Concomitant]
     Active Substance: METOCLOPRAMIDE
     Indication: NAUSEA
     Dosage: UNK
     Route: 042
     Dates: start: 20120111, end: 20120111
  47. UNISAL [Concomitant]
     Indication: DECUBITUS ULCER
     Dosage: UNK
     Dates: start: 20120113, end: 20120113
  48. SODIUM CHLORIDE. [Concomitant]
     Active Substance: SODIUM CHLORIDE
     Indication: BLADDER IRRIGATION
     Dosage: UNK
     Dates: start: 20120113, end: 20120114
  49. LASIX [Concomitant]
     Active Substance: FUROSEMIDE
     Indication: OEDEMA
     Dosage: UNK
     Route: 042
     Dates: start: 20120108, end: 20120109
  50. LASIX [Concomitant]
     Active Substance: FUROSEMIDE
     Dosage: UNK
     Route: 042
     Dates: start: 20120117, end: 20120117
  51. PETHIDINE [Concomitant]
     Active Substance: MEPERIDINE
     Indication: PAIN MANAGEMENT
     Dosage: UNK
     Route: 042
     Dates: start: 20120115, end: 20120115
  52. PLASMA, FRESH FROZEN [Concomitant]
     Active Substance: HUMAN PLASMA
     Dosage: UNK
     Dates: start: 20120106, end: 20120106
  53. NORMAL SALINE [Concomitant]
     Active Substance: SODIUM CHLORIDE
     Dosage: 100 ML, UNK
     Route: 042
     Dates: start: 20120119, end: 20120124
  54. ALBUMIN HUMAN [Concomitant]
     Active Substance: ALBUMIN (HUMAN)
     Dosage: UNK ML, UNK
     Route: 042
     Dates: start: 20120125, end: 20120125
  55. DUPHALAC [Concomitant]
     Active Substance: LACTULOSE
     Dosage: UNK
     Route: 048
     Dates: start: 20120124, end: 20120124
  56. DUPHALAC [Concomitant]
     Active Substance: LACTULOSE
     Dosage: UNK
     Route: 048
     Dates: start: 20120125, end: 20120127
  57. MEGACE [Concomitant]
     Active Substance: MEGESTROL ACETATE
     Indication: DECREASED APPETITE
     Dosage: UNK
     Route: 048
     Dates: start: 20120113, end: 20120122
  58. SODIUM BICARBONATE. [Concomitant]
     Active Substance: SODIUM BICARBONATE
     Indication: PROPHYLAXIS
     Dosage: UNK
     Dates: start: 20120116, end: 20120116
  59. DUROGESIC [Concomitant]
     Active Substance: FENTANYL
     Indication: PAIN MANAGEMENT
     Dosage: 12 UG, UNK
     Dates: start: 20120115, end: 20120115
  60. SODIUM CHLORIDE. [Concomitant]
     Active Substance: SODIUM CHLORIDE
     Indication: GASTRIC LAVAGE
     Dosage: UNK
     Dates: start: 20120107, end: 20120107
  61. LASIX [Concomitant]
     Active Substance: FUROSEMIDE
     Dosage: UNK
     Route: 042
     Dates: start: 20120120, end: 20120120
  62. RED BLOOD CELLS, CONCENTRATED [Concomitant]
     Active Substance: HUMAN RED BLOOD CELL
     Dosage: UNK
     Dates: start: 20120104, end: 20120104
  63. RED BLOOD CELLS, CONCENTRATED [Concomitant]
     Active Substance: HUMAN RED BLOOD CELL
     Dosage: UNK
     Dates: start: 20120117, end: 20120117
  64. TIGECYCLINE. [Suspect]
     Active Substance: TIGECYCLINE
     Indication: SKIN INFECTION
  65. DISTILLED WATER [Concomitant]
     Dosage: 5% 500 ML, UNK
     Route: 042
     Dates: start: 20120119, end: 20120119
  66. ALBUMIN HUMAN [Concomitant]
     Active Substance: ALBUMIN (HUMAN)
     Indication: HYPOALBUMINAEMIA
     Dosage: UNK ML, UNK
     Route: 042
     Dates: start: 20120109, end: 20120109
  67. DUPHALAC [Concomitant]
     Active Substance: LACTULOSE
     Dosage: UNK
     Route: 048
     Dates: start: 20120113, end: 20120114
  68. POTASSIUM CHLORIDE. [Concomitant]
     Active Substance: POTASSIUM CHLORIDE
     Indication: HYPOKALAEMIA
     Dosage: 6 TABLETS
     Route: 048
     Dates: start: 20120106, end: 20120106
  69. METOCLOPRAMIDE. [Concomitant]
     Active Substance: METOCLOPRAMIDE
     Dosage: 3 TABS
     Route: 048
     Dates: start: 20120113, end: 20120118
  70. TRAVAD PHOSPHATE ENEMA [Concomitant]
     Indication: CONSTIPATION
     Dosage: UNK
     Dates: start: 20120111, end: 20120126
  71. SODIUM CHLORIDE. [Concomitant]
     Active Substance: SODIUM CHLORIDE
     Dosage: UNK
     Dates: start: 20120117, end: 20120117
  72. SODIUM CHLORIDE. [Concomitant]
     Active Substance: SODIUM CHLORIDE
     Dosage: UNK
     Dates: start: 20120116, end: 20120117
  73. LASIX [Concomitant]
     Active Substance: FUROSEMIDE
     Dosage: UNK
     Route: 042
     Dates: start: 20120119, end: 20120119
  74. VITAMIN K1 [Concomitant]
     Active Substance: PHYTONADIONE
     Indication: PROPHYLAXIS
     Dosage: UNK
     Route: 042
     Dates: start: 20120112, end: 20120112
  75. PLASMA, FRESH FROZEN [Concomitant]
     Active Substance: HUMAN PLASMA
     Dosage: UNK
     Dates: start: 20120102, end: 20120102
  76. PLASMA, FRESH FROZEN [Concomitant]
     Active Substance: HUMAN PLASMA
     Dosage: UNK
     Dates: start: 20120125, end: 20120125
  77. DISTILLED WATER [Concomitant]
     Dosage: 5% 500 ML, UNK
     Route: 042
     Dates: start: 20120127, end: 20120127
  78. DISTILLED WATER [Concomitant]
     Dosage: 50% 500 ML, UNK
     Route: 042
     Dates: start: 20120119, end: 20120127
  79. NORMAL SALINE [Concomitant]
     Active Substance: SODIUM CHLORIDE
     Dosage: 100 ML, UNK
     Route: 042
     Dates: start: 20120125, end: 20120126
  80. NORMAL SALINE [Concomitant]
     Active Substance: SODIUM CHLORIDE
     Dosage: 100 ML, UNK
     Route: 042
     Dates: start: 20120127, end: 20120127
  81. PAMIDRONATE DISODIUM. [Concomitant]
     Active Substance: PAMIDRONATE DISODIUM
     Dosage: UNK
     Route: 042
     Dates: start: 20120117, end: 20120117
  82. DUPHALAC [Concomitant]
     Active Substance: LACTULOSE
     Indication: AMMONIA ABNORMAL
     Dosage: UNK
     Route: 048
     Dates: start: 20120111, end: 20120111
  83. SODIUM BICARBONATE. [Concomitant]
     Active Substance: SODIUM BICARBONATE
     Dosage: UNK
     Dates: start: 20120117, end: 20120117
  84. METOCLOPRAMIDE. [Concomitant]
     Active Substance: METOCLOPRAMIDE
     Indication: PROPHYLAXIS OF NAUSEA AND VOMITING
     Dosage: UNK
     Route: 042
     Dates: start: 20120112, end: 20120112
  85. METOCLOPRAMIDE. [Concomitant]
     Active Substance: METOCLOPRAMIDE
     Dosage: UNK
     Route: 042
     Dates: start: 20120119, end: 20120123
  86. FURIX [Concomitant]
     Active Substance: FUROSEMIDE
     Dosage: UNK
     Route: 048
     Dates: start: 20120114, end: 20120114
  87. LASIX [Concomitant]
     Active Substance: FUROSEMIDE
     Dosage: UNK
     Route: 042
     Dates: start: 20120112, end: 20120112

REACTIONS (2)
  - Jaundice [Fatal]
  - Blood bilirubin increased [Fatal]

NARRATIVE: CASE EVENT DATE: 20120116
